FAERS Safety Report 13048137 (Version 1)
Quarter: 2016Q4

REPORT INFORMATION
  Report Type: Spontaneous
  Country: FR (occurrence: FR)
  Receive Date: 20161220
  Receipt Date: 20161220
  Transmission Date: 20170207
  Serious: Yes (Hospitalization)
  Sender: FDA-Public Use
  Company Number: FR-MYLANLABS-2016M1055956

PATIENT

DRUGS (4)
  1. PIPERACILLIN AND TAZOBACTAM [Concomitant]
     Active Substance: PIPERACILLIN SODIUM\TAZOBACTAM SODIUM
     Dosage: 8 UNK, UNK
  2. DALACINE [Concomitant]
     Active Substance: CLINDAMYCIN HYDROCHLORIDE
     Indication: OSTEOMYELITIS
     Dosage: 600 MG, QID
     Dates: start: 20160311
  3. VANCOMYCINE MYLAN 1 G, POUDRE POUR SOLUTION POUR PERFUSION [Suspect]
     Active Substance: VANCOMYCIN
     Indication: OSTEOMYELITIS
     Dosage: 1 G, BID
     Route: 042
     Dates: start: 20160311, end: 20160314
  4. PIPERACILLIN AND TAZOBACTAM [Concomitant]
     Active Substance: PIPERACILLIN SODIUM\TAZOBACTAM SODIUM
     Indication: OSTEOMYELITIS
     Dosage: 1 G, BID
     Dates: start: 20160311

REACTIONS (3)
  - Acute kidney injury [Recovered/Resolved]
  - Drug level increased [Recovered/Resolved]
  - Pyrexia [Recovered/Resolved]

NARRATIVE: CASE EVENT DATE: 20160314
